FAERS Safety Report 5449425-6 (Version None)
Quarter: 2007Q3

REPORT INFORMATION
  Report Type: 
  Country: None (occurrence: None)
  Receive Date: 20070911
  Receipt Date: 20070830
  Transmission Date: 20080115
  Serious: Yes (Other)
  Sender: FDA-Public Use
  Company Number: US-PFIZER INC-2007073624

PATIENT
  Sex: Female

DRUGS (7)
  1. LYRICA [Suspect]
     Indication: HYPOAESTHESIA
  2. LYRICA [Suspect]
     Indication: PARAESTHESIA
  3. ASPIRIN [Concomitant]
  4. PLAVIX [Concomitant]
  5. METFORMIN HCL [Concomitant]
  6. GLIPIZIDE [Concomitant]
  7. OMEPRAZOLE [Concomitant]

REACTIONS (2)
  - ACTIVITIES OF DAILY LIVING IMPAIRED [None]
  - WEIGHT INCREASED [None]
